FAERS Safety Report 15388701 (Version 1)
Quarter: 2018Q3

REPORT INFORMATION
  Report Type: Spontaneous
  Country: US (occurrence: US)
  Receive Date: 20180907
  Receipt Date: 20180907
  Transmission Date: 20181010
  Serious: Yes (Hospitalization)
  Sender: FDA-Public Use
  Company Number: None

PATIENT
  Age: 40 Year
  Sex: Female
  Weight: 74.8 kg

DRUGS (5)
  1. CYCLOPHOSPHAMIDE. [Suspect]
     Active Substance: CYCLOPHOSPHAMIDE
     Dates: end: 20180626
  2. CARBOPLATIN. [Suspect]
     Active Substance: CARBOPLATIN
     Dates: end: 20180807
  3. TBO?FILGRASTIM [Concomitant]
     Active Substance: TBO-FILGRASTIM
  4. DOXORUBICIN HYDROCHLORIDE. [Suspect]
     Active Substance: DOXORUBICIN HYDROCHLORIDE
     Dates: end: 20180626
  5. TAXOL [Suspect]
     Active Substance: PACLITAXEL
     Dates: end: 20180828

REACTIONS (8)
  - Toothache [None]
  - Heart rate increased [None]
  - Haemoglobin decreased [None]
  - Haematocrit decreased [None]
  - Neutropenia [None]
  - Tooth abscess [None]
  - Pain in jaw [None]
  - Inadequate analgesia [None]

NARRATIVE: CASE EVENT DATE: 20180901
